FAERS Safety Report 5214999-7 (Version None)
Quarter: 2007Q1

REPORT INFORMATION
  Report Type: 
  Country: None (occurrence: None)
  Receive Date: 20070122
  Receipt Date: 20070110
  Transmission Date: 20070707
  Serious: Yes (Hospitalization)
  Sender: FDA-Public Use
  Company Number: FR-PFIZER INC-033-1343-M0200048

PATIENT
  Sex: Female

DRUGS (11)
  1. VIRACEPT [Suspect]
     Indication: HIV INFECTION
     Dosage: DAILY DOSE:250MG
     Route: 048
  2. ZERIT [Suspect]
     Indication: HIV INFECTION
     Route: 048
  3. ZERIT [Suspect]
     Route: 048
     Dates: start: 20020201, end: 20020227
  4. EPIVIR [Suspect]
     Indication: HIV INFECTION
     Dosage: DAILY DOSE:150MG
     Route: 048
  5. ZIDOVUDINE [Suspect]
     Indication: INFECTION PROPHYLAXIS
     Route: 042
     Dates: start: 20020202, end: 20020202
  6. BACTRIM [Concomitant]
     Route: 048
  7. BUDESONIDE [Concomitant]
  8. TERBUTALINE SULFATE [Concomitant]
  9. SALBUTAMOL [Concomitant]
  10. BECLOMETHASONE DIPROPIONATE [Concomitant]
  11. ECONAZOLE NITRATE [Concomitant]

REACTIONS (3)
  - CAESAREAN SECTION [None]
  - HYPERLIPIDAEMIA [None]
  - LIPASE INCREASED [None]
